FAERS Safety Report 19358157 (Version 2)
Quarter: 2021Q2

REPORT INFORMATION
  Report Type: Spontaneous
  Country: US (occurrence: US)
  Receive Date: 20210601
  Receipt Date: 20210625
  Transmission Date: 20210717
  Serious: Yes (Hospitalization)
  Sender: FDA-Public Use
  Company Number: US-BAYER-2021-148391

PATIENT
  Age: 77 Year
  Sex: Female

DRUGS (2)
  1. MIRALAX [Suspect]
     Active Substance: POLYETHYLENE GLYCOL 3350
     Indication: GASTROINTESTINAL DISORDER
     Dosage: UNK
     Route: 048
     Dates: start: 2021
  2. MIRALAX [Suspect]
     Active Substance: POLYETHYLENE GLYCOL 3350
     Indication: GASTROINTESTINAL DISORDER
     Dosage: 1 TEASPOON, QD
     Route: 048
     Dates: start: 2021

REACTIONS (3)
  - Diarrhoea [Recovered/Resolved]
  - Incorrect dose administered [Unknown]
  - Product prescribing issue [Unknown]

NARRATIVE: CASE EVENT DATE: 2021
